FAERS Safety Report 6639864-X (Version None)
Quarter: 2010Q1

REPORT INFORMATION
  Report Type: 
  Country: None (occurrence: None)
  Receive Date: 20100315
  Receipt Date: 20100301
  Transmission Date: 20100710
  Serious: Yes (Life-Threatening, Hospitalization)
  Sender: FDA-Public Use
  Company Number: 2010AL001348

PATIENT
  Age: 47 Year
  Sex: Female

DRUGS (7)
  1. FEVERALL [Suspect]
     Indication: ANALGESIC THERAPY
     Route: 054
     Dates: start: 20051011, end: 20051011
  2. RIBAVIRIN [Concomitant]
  3. VIRAFERONPEG [Concomitant]
  4. ALCOHOL [Concomitant]
  5. LANSOPRAZOLE [Concomitant]
  6. CITALOPRAM HYDROBROMIDE [Concomitant]
  7. AMITRIPTYLINE HYDROCHLORIDE [Concomitant]

REACTIONS (2)
  - DEPRESSION [None]
  - OVERDOSE [None]
